FAERS Safety Report 12578477 (Version 1)
Quarter: 2016Q3

REPORT INFORMATION
  Report Type: Spontaneous
  Country: US (occurrence: None)
  Receive Date: 20160720
  Receipt Date: 20160720
  Transmission Date: 20161109
  Serious: Yes (Other)
  Sender: FDA-Public Use
  Company Number: None

PATIENT
  Age: 66 Year
  Sex: Female
  Weight: 61.24 kg

DRUGS (10)
  1. CELEXA [Concomitant]
     Active Substance: CITALOPRAM HYDROBROMIDE
  2. LIPITOR [Concomitant]
     Active Substance: ATORVASTATIN CALCIUM
  3. VITAMIN C [Concomitant]
     Active Substance: ASCORBIC ACID
  4. FLEXERIL [Concomitant]
     Active Substance: CYCLOBENZAPRINE HYDROCHLORIDE
  5. SENIOR WOMENS MULTIVITAMIN [Concomitant]
  6. COLLAGEN SUPPLEMENTS [Concomitant]
  7. TURMERIC [Concomitant]
     Active Substance: TURMERIC
  8. FISH OIL [Concomitant]
     Active Substance: FISH OIL
  9. QVAR [Suspect]
     Active Substance: BECLOMETHASONE DIPROPIONATE
     Indication: ASTHMA
     Route: 055
     Dates: start: 20160606, end: 20160718
  10. CALCIUM-MAGNESIUM-ZINC [Concomitant]

REACTIONS (4)
  - Arthralgia [None]
  - Muscle disorder [None]
  - Muscle spasms [None]
  - Tendon disorder [None]

NARRATIVE: CASE EVENT DATE: 20160709
